FAERS Safety Report 7101713-3 (Version None)
Quarter: 2010Q4

REPORT INFORMATION
  Report Type: 
  Country: None (occurrence: None)
  Receive Date: 20101115
  Receipt Date: 20101027
  Transmission Date: 20110411
  Serious: Yes (Other)
  Sender: FDA-Public Use
  Company Number: US-BAYER-201028693NA

PATIENT
  Age: 26 Year
  Sex: Female

DRUGS (1)
  1. YASMIN [Suspect]
     Indication: CONTRACEPTION
     Route: 048
     Dates: start: 20070501, end: 20070701

REACTIONS (5)
  - DERMATITIS INFECTED [None]
  - PHOTOSENSITIVITY REACTION [None]
  - RASH [None]
  - RASH PRURITIC [None]
  - SKIN DISCOLOURATION [None]
